FAERS Safety Report 4302454-8 (Version None)
Quarter: 2004Q1

REPORT INFORMATION
  Report Type: 
  Country: None (occurrence: None)
  Receive Date: 20040218
  Receipt Date: 20031231
  Transmission Date: 20041129
  Serious: Yes (Hospitalization)
  Sender: FDA-Public Use
  Company Number: 200320819US

PATIENT
  Age: 42 Year
  Sex: Female

DRUGS (9)
  1. LANTUS [Suspect]
     Indication: DIABETES MELLITUS
     Dosage: 20 U HS SC
     Route: 058
     Dates: start: 20031219, end: 20031219
  2. LANTUS [Suspect]
     Indication: DIABETES MELLITUS
     Dosage: 15 U HS SC
     Route: 058
     Dates: start: 20031220, end: 20031220
  3. LANTUS [Suspect]
     Indication: DIABETES MELLITUS
     Dosage: 10 U HS SC
     Route: 058
     Dates: start: 20031221
  4. AMITRIPTYLINE HCL [Concomitant]
  5. LASIX [Concomitant]
  6. INSULIN PORCINE (REGULAR INSULIN) [Concomitant]
  7. OXYCODONE HYDROCHLORIDE (OXYCONTIN) [Concomitant]
  8. REMERON [Concomitant]
  9. INDOMETACIN (INDOCIN) [Concomitant]

REACTIONS (2)
  - BLOOD GLUCOSE DECREASED [None]
  - HYPOGLYCAEMIC SEIZURE [None]
